FAERS Safety Report 7163545-X (Version None)
Quarter: 2010Q4

REPORT INFORMATION
  Report Type: 
  Country: None (occurrence: None)
  Receive Date: 20101215
  Receipt Date: 20100505
  Transmission Date: 20110411
  Serious: Yes (Disabling, Other)
  Sender: FDA-Public Use
  Company Number: US-PFIZER INC-2010058027

PATIENT
  Sex: Female
  Weight: 79.82 kg

DRUGS (5)
  1. LYRICA [Suspect]
     Indication: FIBROMYALGIA
     Dosage: 50 MG, 3X/DAY
     Route: 048
     Dates: start: 20090401
  2. LYRICA [Suspect]
     Dosage: 75 MG, 3X/DAY
     Route: 048
     Dates: start: 20100422
  3. LYRICA [Suspect]
     Dosage: 100 MG, 3X/DAY
     Route: 048
  4. LYRICA [Suspect]
     Dosage: 225 MG, 2X/DAY
     Route: 048
  5. CENTRUM [Concomitant]
     Dosage: UNK

REACTIONS (4)
  - DIVERTICULITIS [None]
  - FIBROMYALGIA [None]
  - JOINT STIFFNESS [None]
  - JOINT SWELLING [None]
